FAERS Safety Report 16298969 (Version 3)
Quarter: 2023Q1

REPORT INFORMATION
  Report Type: Spontaneous
  Country: US (occurrence: None)
  Receive Date: 20190510
  Receipt Date: 20230120
  Transmission Date: 20230418
  Serious: Yes (Death, Hospitalization, Other)
  Sender: FDA-Public Use
  Company Number: 2019SE67526

PATIENT
  Age: 810 Month
  Sex: Female
  Weight: 86.2 kg

DRUGS (62)
  1. NEXIUM [Suspect]
     Active Substance: ESOMEPRAZOLE MAGNESIUM
     Indication: Gastrooesophageal reflux disease
     Route: 048
     Dates: start: 20060122, end: 20150512
  2. NEXIUM [Suspect]
     Active Substance: ESOMEPRAZOLE MAGNESIUM
     Indication: Gastrooesophageal reflux disease
     Route: 065
     Dates: start: 20160118, end: 20161125
  3. NEXIUM [Suspect]
     Active Substance: ESOMEPRAZOLE MAGNESIUM
     Indication: Gastrooesophageal reflux disease
     Route: 048
     Dates: start: 20060112
  4. OMEPRAZOLE [Suspect]
     Active Substance: OMEPRAZOLE
     Indication: Gastrooesophageal reflux disease
     Route: 048
     Dates: start: 20080905, end: 20091216
  5. PREVACID [Suspect]
     Active Substance: LANSOPRAZOLE
     Indication: Gastrooesophageal reflux disease
     Route: 065
     Dates: start: 20010128, end: 20010508
  6. VERAPAMIL [Concomitant]
     Active Substance: VERAPAMIL HYDROCHLORIDE
     Indication: Hypertension
     Dates: start: 20040126, end: 20110328
  7. AVAPRO [Concomitant]
     Active Substance: IRBESARTAN
     Indication: Hypertension
     Dates: start: 20040126, end: 20110328
  8. AMARYL [Concomitant]
     Active Substance: GLIMEPIRIDE
     Indication: Diabetes mellitus
     Dates: start: 20040126, end: 20050201
  9. ACTOS [Concomitant]
     Active Substance: PIOGLITAZONE HYDROCHLORIDE
     Indication: Diabetes mellitus
     Dates: start: 20040126
  10. FAMOTIDINE [Concomitant]
     Active Substance: FAMOTIDINE
     Indication: Gastric ulcer
     Dates: start: 20040129, end: 20051117
  11. LIPITOR [Concomitant]
     Active Substance: ATORVASTATIN CALCIUM
     Indication: Blood cholesterol
     Dates: start: 20040427, end: 20111109
  12. CRESTOR [Concomitant]
     Active Substance: ROSUVASTATIN CALCIUM
     Indication: Blood cholesterol
     Dates: start: 20050303, end: 20060613
  13. GABAPENTIN [Concomitant]
     Active Substance: GABAPENTIN
     Indication: Neuralgia
     Dates: start: 20090427, end: 20161027
  14. ALLOPURINOL [Concomitant]
     Active Substance: ALLOPURINOL
     Indication: Gout
     Dates: start: 20110902, end: 20161111
  15. ALLOPURINOL [Concomitant]
     Active Substance: ALLOPURINOL
     Indication: Nephrolithiasis
     Dates: start: 20110902, end: 20161111
  16. AMLODIPINE BESYLATE [Concomitant]
     Active Substance: AMLODIPINE BESYLATE
     Indication: Hypertension
     Dates: start: 20110902, end: 20161111
  17. LANTUS SOLOSTAR [Concomitant]
     Active Substance: INSULIN GLARGINE
     Indication: Blood insulin
     Dates: start: 20080905, end: 20161125
  18. ASPIRIN [Concomitant]
     Active Substance: ASPIRIN
     Indication: Cardiac disorder
     Dates: start: 201001
  19. VITAMIN D [Concomitant]
     Active Substance: VITAMIN D NOS
     Indication: Blood calcium
     Dates: start: 20121107
  20. RANITIDINE [Concomitant]
     Active Substance: RANITIDINE
     Dates: start: 20030301, end: 20030311
  21. ALOCRIL [Concomitant]
     Active Substance: NEDOCROMIL SODIUM
  22. CLOPIDOGREL [Concomitant]
     Active Substance: CLOPIDOGREL BISULFATE
  23. DOXAZOSIN [Concomitant]
     Active Substance: DOXAZOSIN MESYLATE
  24. FLECTOR [Concomitant]
     Active Substance: DICLOFENAC EPOLAMINE
  25. IPRATROPIUM BROMIDE [Concomitant]
     Active Substance: IPRATROPIUM BROMIDE
  26. MOVANTIK [Concomitant]
     Active Substance: NALOXEGOL OXALATE
  27. TORSEMIDE [Concomitant]
     Active Substance: TORSEMIDE
  28. SPIRIVA [Concomitant]
     Active Substance: TIOTROPIUM BROMIDE MONOHYDRATE
  29. ADVAIR DISKUS [Concomitant]
     Active Substance: FLUTICASONE PROPIONATE\SALMETEROL XINAFOATE
  30. HYDROCHLOROTHIAZIDE [Concomitant]
     Active Substance: HYDROCHLOROTHIAZIDE
  31. LISINOPRIL [Concomitant]
     Active Substance: LISINOPRIL
  32. CODEINE [Concomitant]
     Active Substance: CODEINE
  33. AZITHROMYCIN [Concomitant]
     Active Substance: AZITHROMYCIN
  34. ENULOSE [Concomitant]
     Active Substance: LACTULOSE
  35. VALTREX [Concomitant]
     Active Substance: VALACYCLOVIR HYDROCHLORIDE
  36. LYRICA [Concomitant]
     Active Substance: PREGABALIN
  37. BIAXIN [Concomitant]
     Active Substance: CLARITHROMYCIN
  38. TRICOR [Concomitant]
     Active Substance: FENOFIBRATE
  39. LOTRISONE [Concomitant]
     Active Substance: BETAMETHASONE DIPROPIONATE\CLOTRIMAZOLE
  40. GENTAMICIN [Concomitant]
     Active Substance: GENTAMICIN
  41. CORTISPORIN [Concomitant]
     Active Substance: BACITRACIN ZINC\HYDROCORTISONE\NEOMYCIN SULFATE\POLYMYXIN B SULFATE
  42. SUCRALFATE [Concomitant]
     Active Substance: SUCRALFATE
  43. CLOTR/BETAMETHASONE [Concomitant]
  44. MECLIZINE [Concomitant]
     Active Substance: MECLIZINE HYDROCHLORIDE
  45. HYDROCODONE BITARTRATE AND ACETAMINOPHEN [Concomitant]
     Active Substance: ACETAMINOPHEN\HYDROCODONE BITARTRATE
  46. VERAPAMIL [Concomitant]
     Active Substance: VERAPAMIL HYDROCHLORIDE
  47. METRONIDAZOLE [Concomitant]
     Active Substance: METRONIDAZOLE
  48. WELLBUTRIN [Concomitant]
     Active Substance: BUPROPION HYDROCHLORIDE
  49. ENDOCET [Concomitant]
     Active Substance: ACETAMINOPHEN\OXYCODONE HYDROCHLORIDE
  50. TETRACYCLINE [Concomitant]
     Active Substance: TETRACYCLINE
  51. NAPROXEN [Concomitant]
     Active Substance: NAPROXEN
  52. ZETIA [Concomitant]
     Active Substance: EZETIMIBE
  53. BYETTA [Concomitant]
     Active Substance: EXENATIDE
  54. FORTAMET [Concomitant]
     Active Substance: METFORMIN HYDROCHLORIDE
  55. COREG [Concomitant]
     Active Substance: CARVEDILOL
  56. VYTORIN [Concomitant]
     Active Substance: EZETIMIBE\SIMVASTATIN
  57. CLONAZEPAM [Concomitant]
     Active Substance: CLONAZEPAM
  58. GEMFIBROZIL [Concomitant]
     Active Substance: GEMFIBROZIL
  59. JANUVIA [Concomitant]
     Active Substance: SITAGLIPTIN PHOSPHATE
  60. DIPHENOXYLATE [Concomitant]
     Active Substance: DIPHENOXYLATE
  61. XIBROM [Concomitant]
     Active Substance: BROMFENAC SODIUM
  62. CARVEDILOL [Concomitant]
     Active Substance: CARVEDILOL

REACTIONS (5)
  - End stage renal disease [Fatal]
  - Chronic kidney disease [Not Recovered/Not Resolved]
  - Acute kidney injury [Unknown]
  - Renal failure [Unknown]
  - Nephrogenic anaemia [Unknown]

NARRATIVE: CASE EVENT DATE: 20100101
